FAERS Safety Report 20846987 (Version 1)
Quarter: 2022Q2

REPORT INFORMATION
  Report Type: Spontaneous
  Country: DE (occurrence: DE)
  Receive Date: 20220519
  Receipt Date: 20220519
  Transmission Date: 20220720
  Serious: Yes (Other)
  Sender: FDA-Public Use
  Company Number: DE-ELI_LILLY_AND_COMPANY-DE202202005332

PATIENT
  Age: 51 Year
  Sex: Female

DRUGS (3)
  1. LETROZOLE [Suspect]
     Active Substance: LETROZOLE
     Indication: Breast cancer
     Dosage: UNK
     Route: 065
     Dates: start: 20210906
  2. ABEMACICLIB [Suspect]
     Active Substance: ABEMACICLIB
     Indication: Breast cancer
     Dosage: 200 MILLIGRAM, ONCE A DAY (100 MG, UNKNOWN)
     Route: 065
     Dates: start: 20210906
  3. ABEMACICLIB [Suspect]
     Active Substance: ABEMACICLIB
     Dosage: 100 MILLIGRAM, ONCE A DAY (50 MG, TWO TIMES A DAY)
     Route: 048
     Dates: start: 202111

REACTIONS (2)
  - Neutropenia [Recovered/Resolved]
  - Bone marrow disorder [Recovered/Resolved]
